FAERS Safety Report 8974735 (Version 1)
Quarter: 2012Q4

REPORT INFORMATION
  Report Type: 
  Country: US (occurrence: US)
  Receive Date: 20121219
  Receipt Date: 20121219
  Transmission Date: 20130627
  Serious: No
  Sender: FDA-Public Use
  Company Number: US-AMGEN-USASP2012055781

PATIENT
  Age: 62 Year
  Sex: Female

DRUGS (3)
  1. PROLIA [Suspect]
     Indication: OSTEOPOROSIS POSTMENOPAUSAL
     Dosage: 60 mg, q6mo
     Dates: start: 20120507
  2. VITAMIN D /00107901/ [Concomitant]
     Dosage: UNK
  3. NEXIUM                             /01479302/ [Concomitant]
     Dosage: UNK

REACTIONS (1)
  - Cystitis [Recovered/Resolved]
